FAERS Safety Report 9643114 (Version 3)
Quarter: 2013Q4

REPORT INFORMATION
  Report Type: Spontaneous
  Country: IT (occurrence: None)
  Receive Date: 20131022
  Receipt Date: 20131227
  Transmission Date: 20140711
  Serious: Yes (Hospitalization, Other)
  Sender: FDA-Public Use
  Company Number: AUR-APL-2013-08581

PATIENT
  Age: 53 Year
  Sex: Female

DRUGS (4)
  1. SEROQUEL [Suspect]
     Indication: BIPOLAR DISORDER
     Dosage: 3 DOSAGE UNIT (TOTAL), ORAL
     Route: 048
     Dates: start: 20130712, end: 20130712
  2. XANAX [Suspect]
     Indication: PRODUCT USED FOR UNKNOWN INDICATION
     Dosage: 2 DOSAGE UNIT (TOTAL), ORAL
     Route: 048
     Dates: start: 20130712, end: 20130712
  3. SERTRALINE (SERTRALINE) [Suspect]
     Indication: BIPOLAR DISORDER
     Route: 048
     Dates: start: 20130712, end: 20130712
  4. FELISON [Suspect]
     Indication: BIPOLAR DISORDER
     Dosage: 11 DOSAGE UNIT ((TOTAL), ORAL
     Route: 048
     Dates: start: 20130712, end: 20130712

REACTIONS (3)
  - Drug abuse [None]
  - Bradyphrenia [None]
  - Bradykinesia [None]
